FAERS Safety Report 6716133-0 (Version None)
Quarter: 2010Q2

REPORT INFORMATION
  Report Type: 
  Country: None (occurrence: None)
  Receive Date: 20100506
  Receipt Date: 20100506
  Transmission Date: 20101027
  Serious: Yes (Other)
  Sender: FDA-Public Use
  Company Number: None

PATIENT
  Age: 69 Year
  Sex: Male

DRUGS (1)
  1. ELIGARD [Suspect]
     Indication: PROSTATE CANCER
     Dosage: 7.5MG QMONTH SUBQ APPROX 11/30/09-PRESENT
     Route: 058
     Dates: start: 20091130

REACTIONS (1)
  - BLOOD GLUCOSE INCREASED [None]
